FAERS Safety Report 6270681-9 (Version None)
Quarter: 2009Q3

REPORT INFORMATION
  Report Type: 
  Country: None (occurrence: None)
  Receive Date: 20090714
  Receipt Date: 20090629
  Transmission Date: 20100115
  Serious: Yes (Hospitalization, Disabling)
  Sender: FDA-Public Use
  Company Number: 2009-02670

PATIENT
  Age: 65 Year
  Sex: Male
  Weight: 76 kg

DRUGS (1)
  1. VELCADE [Suspect]
     Dosage: 2.6 MG, INTRAVENOUS
     Route: 042
     Dates: start: 20080627, end: 20080627

REACTIONS (3)
  - DELIRIUM [None]
  - DISORIENTATION [None]
  - MENTAL DISORDER [None]
